FAERS Safety Report 8834404 (Version 2)
Quarter: 2012Q4

REPORT INFORMATION
  Report Type: 
  Country: US (occurrence: US)
  Receive Date: 20121010
  Receipt Date: 20121017
  Transmission Date: 20130627
  Serious: Yes (Hospitalization)
  Sender: FDA-Public Use
  Company Number: US-ASTRAZENECA-2012SE76513

PATIENT
  Age: 19337 Day
  Sex: Female
  Weight: 113.9 kg

DRUGS (13)
  1. SEROQUEL [Suspect]
     Indication: INSOMNIA
     Route: 048
     Dates: start: 201209, end: 20121002
  2. SEROQUEL [Suspect]
     Indication: DEPRESSION
     Route: 048
     Dates: start: 201209, end: 20121002
  3. SEROQUEL [Suspect]
     Indication: INSOMNIA
     Route: 048
  4. SEROQUEL [Suspect]
     Indication: DEPRESSION
     Route: 048
  5. OMEPRAZOLE [Concomitant]
     Indication: ULCER
     Route: 048
  6. KLONOPIN [Concomitant]
     Indication: DEPRESSION
     Route: 048
  7. VIBRYD [Concomitant]
     Route: 048
  8. NAPROXEN [Concomitant]
     Dosage: BID
     Route: 048
  9. ONDANSETRON HCL [Concomitant]
     Indication: NAUSEA
     Route: 048
  10. SUCRALFATE [Concomitant]
  11. HYDROCODONE WITH ACETOMINOPHEN [Concomitant]
     Indication: PAIN
  12. DEPRESSION MEDICATION [Concomitant]
     Indication: DEPRESSION
  13. ULCER MEDICATION [Concomitant]
     Indication: ULCER

REACTIONS (8)
  - Pain [Not Recovered/Not Resolved]
  - Thrombosis [Not Recovered/Not Resolved]
  - Oedema peripheral [Not Recovered/Not Resolved]
  - Oedema [Not Recovered/Not Resolved]
  - Contusion [Unknown]
  - Skin discolouration [Unknown]
  - Varicose vein [Unknown]
  - Burning sensation [Unknown]
